FAERS Safety Report 9236846 (Version 1)
Quarter: 2013Q2

REPORT INFORMATION
  Report Type: Spontaneous
  Country: CN (occurrence: None)
  Receive Date: 20130415
  Receipt Date: 20130415
  Transmission Date: 20140414
  Serious: Yes (Other)
  Sender: FDA-Public Use
  Company Number: FK201301105

PATIENT
  Age: 21 Year
  Sex: Male

DRUGS (5)
  1. METOPROLOL TARTRATE [Suspect]
     Indication: HYPERTENSION
     Route: 048
  2. METOPROLOL TARTRATE [Suspect]
     Indication: HYPERTENSION
     Route: 048
  3. METOPROLOL TARTRATE [Suspect]
     Indication: HYPERTENSION
     Route: 048
  4. AMLODIPINE [Suspect]
     Indication: HYPERTENSION
     Dosage: 2.5 MG, DAILY.ORAL.
  5. ISOSORBIDE MONONITRATE [Suspect]
     Indication: HYPERTENSION
     Dosage: 10 MG TID,ORAL

REACTIONS (1)
  - Delirium [None]
